FAERS Safety Report 4422313-X (Version None)
Quarter: 2004Q3

REPORT INFORMATION
  Report Type: 
  Country: None (occurrence: None)
  Receive Date: 20040810
  Receipt Date: 20040804
  Transmission Date: 20050211
  Serious: Yes (Life-Threatening)
  Sender: FDA-Public Use
  Company Number: JPKYO-S-20030058

PATIENT
  Age: 69 Year
  Sex: Male

DRUGS (7)
  1. NAVELBINE [Suspect]
     Indication: NON-SMALL CELL LUNG CANCER
     Dosage: 40MG PER DAY
     Route: 042
     Dates: start: 20030324, end: 20030324
  2. MS CONTIN [Concomitant]
     Dates: start: 20030320, end: 20030404
  3. SERMION [Concomitant]
     Dates: start: 20030318, end: 20030404
  4. HOKUNALIN [Concomitant]
     Dates: start: 20030318, end: 20030404
  5. MUCOSOLVAN [Concomitant]
     Dates: start: 20030318, end: 20030404
  6. MEDICON [Concomitant]
     Dates: start: 20030318, end: 20030404
  7. SENEGA [Concomitant]
     Dates: start: 20030318, end: 20030404

REACTIONS (3)
  - ABDOMINAL PAIN [None]
  - INTESTINAL PERFORATION [None]
  - INTESTINAL ULCER [None]
